FAERS Safety Report 4961435-1 (Version None)
Quarter: 2006Q1

REPORT INFORMATION
  Report Type: 
  Country: None (occurrence: None)
  Receive Date: 20060201
  Receipt Date: 20051205
  Transmission Date: 20060701
  Serious: No
  Sender: FDA-Public Use
  Company Number: 2005PV005404

PATIENT
  Age: 59 Year
  Sex: Female
  Weight: 80.7403 kg

DRUGS (16)
  1. BYETTA [Suspect]
     Indication: DIABETES MELLITUS NON-INSULIN-DEPENDENT
     Dosage: SEE IMAGE
     Route: 058
     Dates: start: 20050917, end: 20051010
  2. BYETTA [Suspect]
     Indication: DIABETES MELLITUS NON-INSULIN-DEPENDENT
     Dosage: SEE IMAGE
     Route: 058
     Dates: start: 20051010
  3. ANTARA [Concomitant]
  4. CORGARD [Concomitant]
  5. ASPIRIN [Concomitant]
  6. MULTIVITAMIN [Concomitant]
  7. AMARYL [Concomitant]
  8. ACTOS [Concomitant]
  9. WELCHOL [Concomitant]
  10. BUPROPION HYDROCHLORIDE [Concomitant]
  11. CELEBREX [Concomitant]
  12. DOXEPIN HCL [Concomitant]
  13. NIASPAN [Concomitant]
  14. PREVACID [Concomitant]
  15. SOMA [Concomitant]
  16. MAXZIDE [Concomitant]

REACTIONS (9)
  - BLOOD GLUCOSE DECREASED [None]
  - CHILLS [None]
  - FEELING JITTERY [None]
  - HEADACHE [None]
  - MIGRAINE [None]
  - NAUSEA [None]
  - SENSITIVITY OF TEETH [None]
  - VISUAL DISTURBANCE [None]
  - VITREOUS FLOATERS [None]
